FAERS Safety Report 5239022-X (Version None)
Quarter: 2007Q1

REPORT INFORMATION
  Report Type: 
  Country: None (occurrence: None)
  Receive Date: 20061208
  Receipt Date: 20050624
  Transmission Date: 20070707
  Serious: Yes (Other)
  Sender: FDA-Public Use
  Company Number: 2005UW09671

PATIENT
  Age: 62 Year
  Sex: Female
  Weight: 81.646 kg

DRUGS (7)
  1. CRESTOR [Suspect]
     Indication: BLOOD CHOLESTEROL INCREASED
     Dosage: 10 MG
  2. GLUCOSAMINE [Concomitant]
  3. MSM [Concomitant]
  4. LOTREL [Concomitant]
  5. HYDRODIURIL [Concomitant]
  6. CLARITIN [Concomitant]
  7. FLEXERIL [Concomitant]

REACTIONS (2)
  - ABDOMINAL DISTENSION [None]
  - CONSTIPATION [None]
